FAERS Safety Report 12709242 (Version 1)
Quarter: 2016Q3

REPORT INFORMATION
  Report Type: Spontaneous
  Country: US (occurrence: None)
  Receive Date: 20160901
  Receipt Date: 20160901
  Transmission Date: 20161109
  Serious: Yes (Disabling)
  Sender: FDA-Public Use
  Company Number: None

PATIENT
  Age: 82 Year
  Sex: Female
  Weight: 58.97 kg

DRUGS (5)
  1. PACEMAKER [Concomitant]
  2. BENADRYL [Concomitant]
     Active Substance: DIPHENHYDRAMINE HYDROCHLORIDE
  3. MIDODRINE [Suspect]
     Active Substance: MIDODRINE
     Indication: HYPERTENSION
     Route: 048
     Dates: start: 20160810, end: 20160831
  4. LIPITOR [Concomitant]
     Active Substance: ATORVASTATIN CALCIUM
  5. ASPIRIN. [Concomitant]
     Active Substance: ASPIRIN

REACTIONS (3)
  - Fatigue [None]
  - Muscle twitching [None]
  - Feeling abnormal [None]

NARRATIVE: CASE EVENT DATE: 20160810
